FAERS Safety Report 20064629 (Version 1)
Quarter: 2021Q4

REPORT INFORMATION
  Report Type: Spontaneous
  Country: CN (occurrence: CN)
  Receive Date: 20211112
  Receipt Date: 20211112
  Transmission Date: 20220303
  Serious: Yes (Hospitalization)
  Sender: FDA-Public Use
  Company Number: CN-ORGANON-O2111CHN000593

PATIENT
  Age: 34 Year
  Sex: Female
  Weight: 70 kg

DRUGS (2)
  1. ORGALUTRAN [Suspect]
     Active Substance: GANIRELIX ACETATE
     Indication: Controlled ovarian stimulation
     Dosage: 0.25 MILLIGRAM, QD
     Dates: start: 20211018
  2. PUREGON [Concomitant]
     Indication: Ovulation induction
     Dosage: 225 INTERNATIONAL UNIT, QD
     Dates: start: 20211014, end: 20211021

REACTIONS (9)
  - Erythema [Recovering/Resolving]
  - Pruritus [Recovering/Resolving]
  - Generalised oedema [Recovering/Resolving]
  - Injection site pruritus [Recovered/Resolved]
  - Injection site erythema [Recovered/Resolved]
  - Injection site swelling [Recovered/Resolved]
  - Injection site pruritus [Recovering/Resolving]
  - Injection site erythema [Recovering/Resolving]
  - Injection site swelling [Recovering/Resolving]

NARRATIVE: CASE EVENT DATE: 20211018
